FAERS Safety Report 8195668-0 (Version None)
Quarter: 2012Q1

REPORT INFORMATION
  Report Type: 
  Country: None (occurrence: None)
  Receive Date: 20120308
  Receipt Date: 20120224
  Transmission Date: 20120608
  Serious: Yes (Other)
  Sender: FDA-Public Use
  Company Number: US-ELI_LILLY_AND_COMPANY-US201202008437

PATIENT
  Age: 18 Year
  Sex: Male

DRUGS (3)
  1. STRATTERA [Suspect]
     Dosage: 60 MG, UNK
  2. STRATTERA [Suspect]
     Dosage: 25 MG, UNK
     Dates: start: 20120101
  3. STRATTERA [Suspect]
     Dosage: 40 MG, UNK

REACTIONS (3)
  - SUICIDAL IDEATION [None]
  - INTENTIONAL DRUG MISUSE [None]
  - HEADACHE [None]
